FAERS Safety Report 18762247 (Version 1)
Quarter: 2021Q1

REPORT INFORMATION
  Report Type: Spontaneous
  Country: US (occurrence: US)
  Receive Date: 20210120
  Receipt Date: 20210120
  Transmission Date: 20210419
  Serious: Yes (Life-Threatening, Other)
  Sender: FDA-Public Use
  Company Number: US-PFIZER INC-2021017764

PATIENT
  Age: 21 Year
  Sex: Female

DRUGS (3)
  1. HALOPERIDOL. [Suspect]
     Active Substance: HALOPERIDOL
     Indication: SEDATION
     Dosage: UNK (10 UG/HR)
     Route: 042
  2. DROPERIDOL. [Suspect]
     Active Substance: DROPERIDOL
     Indication: SEDATION
     Dosage: UNK, AS NEEDED
  3. METOCLOPRAMIDE HCL [Suspect]
     Active Substance: METOCLOPRAMIDE HYDROCHLORIDE
     Indication: SEDATION
     Dosage: 10 MG, 4X/DAY
     Route: 042

REACTIONS (2)
  - Off label use [Unknown]
  - Neuroleptic malignant syndrome [Recovering/Resolving]
